FAERS Safety Report 7423806-3 (Version None)
Quarter: 2011Q2

REPORT INFORMATION
  Report Type: 
  Country: None (occurrence: None)
  Receive Date: 20110419
  Receipt Date: 20110407
  Transmission Date: 20111010
  Serious: Yes (Other)
  Sender: FDA-Public Use
  Company Number: PHHY2011NL31870

PATIENT
  Sex: Male

DRUGS (3)
  1. ZOMETA [Suspect]
     Indication: PROSTATE CANCER METASTATIC
     Dosage: 4 MG/5 ML
     Route: 042
     Dates: start: 20110310
  2. ANALGESICS,OTHER [Concomitant]
  3. CHEMOTHERAPEUTICS NOS [Concomitant]

REACTIONS (2)
  - DEHYDRATION [None]
  - HALLUCINATION [None]
